FAERS Safety Report 8276672 (Version 4)
Quarter: 2012Q4

REPORT INFORMATION
  Report Type: 
  Country: US (occurrence: US)
  Receive Date: 20111206
  Receipt Date: 20120918
  Transmission Date: 20130627
  Serious: Yes (Death, Hospitalization)
  Sender: FDA-Public Use
  Company Number: US-GLAXOSMITHKLINE-A0956214A

PATIENT
  Age: 93 Year
  Sex: Male
  Weight: 64.1 kg

DRUGS (23)
  1. COREG [Suspect]
     Indication: PRODUCT USED FOR UNKNOWN INDICATION
     Dosage: 6.25MG Twice per day
     Route: 048
     Dates: end: 20110731
  2. ADVAIR [Suspect]
     Indication: CHRONIC OBSTRUCTIVE PULMONARY DISEASE
     Dosage: 1PUFF Twice per day
     Route: 055
     Dates: end: 20110731
  3. AVODART [Suspect]
     Indication: BENIGN PROSTATIC HYPERPLASIA
     Dosage: .5MG Per day
     Route: 048
     Dates: end: 20110731
  4. COUMADIN [Suspect]
     Indication: ATRIAL FIBRILLATION
     Route: 048
  5. SPIRIVA [Concomitant]
  6. ZOCOR [Concomitant]
  7. ZAROXOLYN [Concomitant]
  8. LASIX [Concomitant]
  9. TYLENOL EXTRA STRENGTH [Concomitant]
  10. MUCINEX [Concomitant]
  11. ALBUTEROL SULFATE [Concomitant]
  12. COLACE [Concomitant]
  13. OXYGEN [Concomitant]
  14. TERAZOSIN [Concomitant]
  15. MULTIVITAMIN [Concomitant]
  16. AZITHROMYCIN [Concomitant]
     Indication: PNEUMONIA
  17. DOXYCYCLINE [Concomitant]
     Indication: BRONCHITIS CHRONIC
  18. BACTRIM [Concomitant]
     Indication: BRONCHITIS CHRONIC
  19. PROSCAR [Concomitant]
  20. ATROVENT [Concomitant]
  21. SYNTHROID [Concomitant]
  22. ZESTRIL [Concomitant]
  23. MILK OF MAGNESIA [Concomitant]

REACTIONS (19)
  - Death [Fatal]
  - Pneumonia [Unknown]
  - Deafness [Unknown]
  - Hallucination [Unknown]
  - Leukocytosis [Unknown]
  - Hypoxia [Recovering/Resolving]
  - Coagulopathy [Recovered/Resolved]
  - Hypotension [Unknown]
  - Fall [Unknown]
  - Muscle strain [Unknown]
  - Dyspnoea [Unknown]
  - Oedema peripheral [Unknown]
  - Dizziness [Unknown]
  - Amnesia [Unknown]
  - Depression [Unknown]
  - Haemoptysis [Recovered/Resolved]
  - Oral candidiasis [Unknown]
  - Sputum increased [Recovered/Resolved]
  - Cardiovascular deconditioning [Unknown]
